FAERS Safety Report 22868975 (Version 2)
Quarter: 2023Q4

REPORT INFORMATION
  Report Type: Spontaneous
  Country: DE (occurrence: DE)
  Receive Date: 20230825
  Receipt Date: 20231024
  Transmission Date: 20240110
  Serious: Yes (Other)
  Sender: FDA-Public Use
  Company Number: DE-002147023-NVSC2023DE182912

PATIENT

DRUGS (4)
  1. RUXOLITINIB [Suspect]
     Active Substance: RUXOLITINIB
     Indication: Polycythaemia vera
     Dosage: UNK (DAILY)
     Route: 065
     Dates: start: 2022
  2. RUXOLITINIB [Suspect]
     Active Substance: RUXOLITINIB
     Dosage: UNK (DAILY)
     Route: 065
  3. ASPIRIN [Concomitant]
     Active Substance: ASPIRIN
     Indication: Product used for unknown indication
     Dosage: UNK (100)
     Route: 065
  4. ZOLPIDEM [Concomitant]
     Active Substance: ZOLPIDEM TARTRATE
     Indication: Product used for unknown indication
     Dosage: UNK (5) (NIGHT)
     Route: 065

REACTIONS (11)
  - Hyperhidrosis [Not Recovered/Not Resolved]
  - Hair texture abnormal [Recovering/Resolving]
  - Herpes zoster [Recovered/Resolved]
  - Immunodeficiency [Recovering/Resolving]
  - Onychoclasis [Not Recovered/Not Resolved]
  - Nail bed bleeding [Not Recovered/Not Resolved]
  - Nail avulsion [Recovered/Resolved]
  - Bronchitis [Recovered/Resolved]
  - Influenza [Recovered/Resolved]
  - Blood iron decreased [Unknown]
  - Dermatitis [Recovered/Resolved]

NARRATIVE: CASE EVENT DATE: 20230101
